FAERS Safety Report 6195545-0 (Version None)
Quarter: 2009Q2

REPORT INFORMATION
  Report Type: 
  Country: None (occurrence: None)
  Receive Date: 20090519
  Receipt Date: 20090512
  Transmission Date: 20091009
  Serious: Yes (Disabling, Other)
  Sender: FDA-Public Use
  Company Number: PHHY2009FR16346

PATIENT
  Sex: Female
  Weight: 62 kg

DRUGS (5)
  1. ACLASTA [Suspect]
     Indication: OSTEOPOROSIS
     Dosage: UNK
     Dates: start: 20090401
  2. ALDACTONE [Concomitant]
     Indication: PRIMARY HYPERALDOSTERONISM
     Dosage: 50MG DAILY
  3. INIPOMP [Concomitant]
     Indication: HIATUS HERNIA
     Dosage: 40MG DAILY
  4. TAREG [Concomitant]
     Indication: HYPERTENSION
     Dosage: 160MG DAILY
  5. HAVLANE [Concomitant]
     Indication: INSOMNIA
     Dosage: 1 DF DAILY

REACTIONS (5)
  - BONE PAIN [None]
  - MOBILITY DECREASED [None]
  - TENDON PAIN [None]
  - TENDON RUPTURE [None]
  - TENDONITIS [None]
